FAERS Safety Report 14624505 (Version 1)
Quarter: 2018Q1

REPORT INFORMATION
  Report Type: Spontaneous
  Country: US (occurrence: US)
  Receive Date: 20180311
  Receipt Date: 20180311
  Transmission Date: 20180509
  Serious: No
  Sender: FDA-Public Use
  Company Number: None

PATIENT
  Age: 48 Year
  Sex: Female
  Weight: 75.6 kg

DRUGS (1)
  1. CIPROFLOXACN [Suspect]
     Active Substance: CIPROFLOXACIN
     Indication: URINARY TRACT INFECTION
     Dosage: ?          QUANTITY:20 TABLET(S);?
     Route: 048
     Dates: start: 20180301, end: 20180310

REACTIONS (2)
  - Peripheral swelling [None]
  - Arthralgia [None]

NARRATIVE: CASE EVENT DATE: 20180310
